APPROVED DRUG PRODUCT: VALGANCICLOVIR HYDROCHLORIDE
Active Ingredient: VALGANCICLOVIR HYDROCHLORIDE
Strength: EQ 450MG BASE
Dosage Form/Route: TABLET;ORAL
Application: A218027 | Product #001 | TE Code: AB
Applicant: SPH ZHONGXI PHARMACEUTICAL CO LTD
Approved: Apr 16, 2025 | RLD: No | RS: No | Type: RX